FAERS Safety Report 18541447 (Version 1)
Quarter: 2020Q4

REPORT INFORMATION
  Report Type: Spontaneous
  Country: US (occurrence: US)
  Receive Date: 20201124
  Receipt Date: 20201124
  Transmission Date: 20210114
  Serious: No
  Sender: FDA-Public Use
  Company Number: US-TEVA-2020-US-1852345

PATIENT
  Age: 42 Year
  Sex: Female

DRUGS (1)
  1. TREPROSTINIL MDV TEVA [Suspect]
     Active Substance: TREPROSTINIL
     Dosage: 33 NG/KG/MIN
     Route: 042
     Dates: start: 20200918

REACTIONS (1)
  - Cough [Unknown]

NARRATIVE: CASE EVENT DATE: 20201108
